FAERS Safety Report 5822249-3 (Version None)
Quarter: 2008Q3

REPORT INFORMATION
  Report Type: 
  Country: None (occurrence: None)
  Receive Date: 20080722
  Receipt Date: 20080703
  Transmission Date: 20090109
  Serious: No
  Sender: FDA-Public Use
  Company Number: 8034581

PATIENT
  Age: 9 Year
  Sex: Male
  Weight: 49 kg

DRUGS (3)
  1. EQUASYM [Suspect]
     Indication: ATTENTION DEFICIT/HYPERACTIVITY DISORDER
     Dosage: 10 MG /D
     Dates: start: 20070504
  2. EQUASYM [Suspect]
     Indication: ATTENTION DEFICIT/HYPERACTIVITY DISORDER
     Dosage: 20 MG /D
     Dates: start: 20070511
  3. EQUASYM [Suspect]
     Indication: ATTENTION DEFICIT/HYPERACTIVITY DISORDER
     Dosage: 30 MG /D
     Dates: start: 20070516

REACTIONS (4)
  - CRYING [None]
  - GASTROINTESTINAL PAIN [None]
  - HEADACHE [None]
  - TIC [None]
